FAERS Safety Report 5192203-6 (Version None)
Quarter: 2006Q4

REPORT INFORMATION
  Report Type: 
  Country: None (occurrence: None)
  Receive Date: 20061221
  Receipt Date: 20061221
  Transmission Date: 20070319
  Serious: Yes (Life-Threatening, Hospitalization)
  Sender: FDA-Public Use
  Company Number: None

PATIENT
  Age: 87 Year
  Sex: Female
  Weight: 76.3404 kg

DRUGS (1)
  1. FASLODEX [Suspect]
     Indication: BREAST CANCER METASTATIC
     Dosage: 500 M Q MONTH IM
     Route: 030
     Dates: start: 20060724, end: 20061016

REACTIONS (3)
  - DYSPNOEA [None]
  - PERICARDIAL EFFUSION MALIGNANT [None]
  - PRESYNCOPE [None]
